FAERS Safety Report 10472215 (Version 1)
Quarter: 2014Q3

REPORT INFORMATION
  Report Type: Spontaneous
  Country: US (occurrence: None)
  Receive Date: 20140923
  Receipt Date: 20140923
  Transmission Date: 20150326
  Serious: No
  Sender: FDA-Public Use
  Company Number: None

PATIENT
  Age: 38 Year
  Sex: Male
  Weight: 82.1 kg

DRUGS (1)
  1. HYDROCODONE ACETAMINOPHEN [Suspect]
     Active Substance: ACETAMINOPHEN\HYDROCODONE BITARTRATE
     Indication: PAIN
     Dosage: 1 TAB Q6H PRN
     Route: 048
     Dates: start: 20140908

REACTIONS (3)
  - Product substitution issue [None]
  - Malaise [None]
  - Abdominal pain upper [None]

NARRATIVE: CASE EVENT DATE: 20140908
